FAERS Safety Report 6378695-5 (Version None)
Quarter: 2009Q3

REPORT INFORMATION
  Report Type: 
  Country: None (occurrence: None)
  Receive Date: 20090923
  Receipt Date: 20090914
  Transmission Date: 20100115
  Serious: Yes (Death, Hospitalization)
  Sender: FDA-Public Use
  Company Number: 2008AL012280

PATIENT
  Age: 54 Year
  Sex: Female

DRUGS (11)
  1. DIGOXIN [Suspect]
     Indication: CONGESTIVE CARDIOMYOPATHY
     Dosage: 0.125 MG, DAILY PO
     Route: 048
     Dates: start: 20041220
  2. DIGOXIN [Suspect]
     Indication: CARDIAC FAILURE CONGESTIVE
     Dosage: 0.125 MG, DAILY, PO
     Route: 048
     Dates: start: 20041220
  3. LASIX [Concomitant]
  4. SPIRONOLACTONE [Concomitant]
  5. VASOTEC [Concomitant]
  6. COQ [Concomitant]
  7. ALDACTONE [Concomitant]
  8. POTASSIUM CHLORIDE [Concomitant]
  9. COREG [Concomitant]
  10. DOPAMINE HCL [Concomitant]
  11. LEVOPHED [Concomitant]

REACTIONS (20)
  - ANOXIC ENCEPHALOPATHY [None]
  - BRADYCARDIA [None]
  - BUNDLE BRANCH BLOCK LEFT [None]
  - CARDIAC FAILURE CONGESTIVE [None]
  - CARDIO-RESPIRATORY ARREST [None]
  - CARDIOGENIC SHOCK [None]
  - CONGESTIVE CARDIOMYOPATHY [None]
  - DISEASE PROGRESSION [None]
  - ECONOMIC PROBLEM [None]
  - ELECTROMECHANICAL DISSOCIATION [None]
  - EMOTIONAL DISTRESS [None]
  - FAILURE TO CAPTURE [None]
  - INCORRECT DOSE ADMINISTERED [None]
  - LEUKOPENIA [None]
  - MULTIPLE INJURIES [None]
  - PAIN [None]
  - PULMONARY OEDEMA [None]
  - RENAL FAILURE [None]
  - UNRESPONSIVE TO STIMULI [None]
  - VIRAL INFECTION [None]
